FAERS Safety Report 9002695 (Version 1)
Quarter: 2013Q1

REPORT INFORMATION
  Report Type: Spontaneous
  Country: US (occurrence: US)
  Receive Date: 20130107
  Receipt Date: 20130107
  Transmission Date: 20140127
  Serious: No
  Sender: FDA-Public Use
  Company Number: US-GLAXOSMITHKLINE-A0975565A

PATIENT
  Age: 54 Year
  Sex: Female
  Weight: 70.37 kg

DRUGS (3)
  1. BENLYSTA [Suspect]
     Indication: SYSTEMIC LUPUS ERYTHEMATOSUS
     Route: 042
     Dates: start: 20120424
  2. PLAQUENIL [Concomitant]
  3. TYLENOL [Concomitant]
     Indication: PAIN

REACTIONS (1)
  - Blood pressure decreased [Recovered/Resolved]
